FAERS Safety Report 5066343-6 (Version None)
Quarter: 2006Q3

REPORT INFORMATION
  Report Type: 
  Country: None (occurrence: None)
  Receive Date: 20060728
  Receipt Date: 20060714
  Transmission Date: 20061208
  Serious: Yes (Death)
  Sender: FDA-Public Use
  Company Number: 2006S1006546

PATIENT
  Age: 45 Year
  Sex: Male

DRUGS (6)
  1. CLOZAPINE [Suspect]
     Dosage: 50 MG; QD; PO
     Route: 048
     Dates: start: 20050201
  2. CLOZAPINE [Suspect]
     Dosage: 500 MG; QD; PO
     Route: 048
     Dates: start: 20050201
  3. GABAPENTIN [Concomitant]
  4. CITALOPRAM [Concomitant]
  5. LITHIUM [Concomitant]
  6. BENZTROPINE MESYLATE [Concomitant]

REACTIONS (1)
  - TREATMENT NONCOMPLIANCE [None]
